FAERS Safety Report 10475674 (Version 1)
Quarter: 2014Q3

REPORT INFORMATION
  Report Type: Spontaneous
  Country: DE (occurrence: DE)
  Receive Date: 20140925
  Receipt Date: 20140925
  Transmission Date: 20150326
  Serious: Yes (Congenital Anomaly, Other)
  Sender: FDA-Public Use
  Company Number: DE-TEVA-509451GER

PATIENT
  Age: 1 Day
  Sex: Male

DRUGS (4)
  1. VIMPAT [Suspect]
     Active Substance: LACOSAMIDE
     Indication: EPILEPSY
     Dosage: 450 MILLIGRAM DAILY; 450 [MG/D ]/ INCREASED TO 150-0-300
     Route: 064
     Dates: start: 20120921, end: 20130605
  2. FOLIO [Concomitant]
     Active Substance: FOLIC ACID
     Indication: VITAMIN SUPPLEMENTATION
     Dosage: .4 MILLIGRAM DAILY;
     Route: 064
  3. RIVOTRIL [Concomitant]
     Active Substance: CLONAZEPAM
     Indication: EPILEPSY
     Dosage: 2 [MG ]/ ON DEMAND
     Route: 064
  4. LAMOTRIGIN [Suspect]
     Active Substance: LAMOTRIGINE
     Indication: EPILEPSY
     Dosage: 350 MILLIGRAM DAILY; 350 [MG/D (200-0-150 MG/D) ]
     Route: 064
     Dates: start: 20120921, end: 20130605

REACTIONS (4)
  - Congenital melanocytic naevus [Not Recovered/Not Resolved]
  - Neonatal respiratory distress syndrome [Recovered/Resolved]
  - Hypothermia neonatal [Recovered/Resolved]
  - Foetal exposure during pregnancy [Unknown]

NARRATIVE: CASE EVENT DATE: 20130605
